FAERS Safety Report 4915274-8 (Version None)
Quarter: 2006Q1

REPORT INFORMATION
  Report Type: 
  Country: None (occurrence: None)
  Receive Date: 20060216
  Receipt Date: 20060216
  Transmission Date: 20060701
  Serious: Yes (Hospitalization)
  Sender: FDA-Public Use
  Company Number: None

PATIENT
  Sex: Female
  Weight: 83.9154 kg

DRUGS (4)
  1. LEVAQUIN [Suspect]
     Indication: ANTI-INFECTIVE THERAPY
     Dosage: PO PRIOR TO ADMISSION
     Route: 048
  2. KEFLEX [Suspect]
     Indication: ANTI-INFECTIVE THERAPY
     Dosage: PO, PRIOR TO ADMISSION
     Route: 048
  3. PREDNISONE [Concomitant]
  4. PEPCID [Concomitant]

REACTIONS (6)
  - ANXIETY [None]
  - CHILLS [None]
  - PRURITUS [None]
  - RASH [None]
  - RECTAL HAEMORRHAGE [None]
  - THROAT TIGHTNESS [None]
